FAERS Safety Report 4928015-5 (Version None)
Quarter: 2006Q1

REPORT INFORMATION
  Report Type: 
  Country: None (occurrence: None)
  Receive Date: 20060127
  Receipt Date: 20051210
  Transmission Date: 20060701
  Serious: Yes (Other)
  Sender: FDA-Public Use
  Company Number: 2005168380

PATIENT
  Age: 81 Year
  Sex: Female
  Weight: 49.8957 kg

DRUGS (4)
  1. LYRICA [Suspect]
     Indication: BACK PAIN
     Dosage: 75 MG (75MG, 1 IN 1 D), ORAL
     Route: 048
     Dates: start: 20051208
  2. OXYCODONE (OXYCODONE) [Suspect]
     Indication: BACK PAIN
     Dosage: (4 IN 1 D), ORAL
     Route: 048
     Dates: end: 20051201
  3. NORVASC [Concomitant]
  4. ETODOLAC [Concomitant]

REACTIONS (5)
  - DIZZINESS [None]
  - DRUG INTERACTION [None]
  - FALL [None]
  - SOMNOLENCE [None]
  - VISION BLURRED [None]
